FAERS Safety Report 9625518 (Version 2)
Quarter: 2013Q4

REPORT INFORMATION
  Report Type: Spontaneous
  Country: US (occurrence: US)
  Receive Date: 20131016
  Receipt Date: 20131105
  Transmission Date: 20140711
  Serious: Yes (Other)
  Sender: FDA-Public Use
  Company Number: PHHY2013US111124

PATIENT
  Age: 14 Year
  Sex: Male

DRUGS (2)
  1. CICLOSPORIN [Suspect]
     Indication: DERMATITIS ATOPIC
     Dosage: 100 MG, BID (5 MG/KG/DAY)
     Route: 048
  2. ITRACONAZOLE [Interacting]
     Indication: TINEA VERSICOLOUR
     Dosage: 100 MG, DAILY
     Route: 048

REACTIONS (11)
  - Neurotoxicity [Recovered/Resolved]
  - Anxiety [Recovered/Resolved]
  - Memory impairment [Recovered/Resolved]
  - Learning disorder [Recovered/Resolved]
  - Mental impairment [Recovered/Resolved]
  - Dysgraphia [Recovered/Resolved]
  - Cognitive disorder [Recovered/Resolved]
  - Toxicity to various agents [Recovered/Resolved]
  - Drug interaction [Unknown]
  - Immunosuppressant drug level decreased [Recovered/Resolved]
  - Drug ineffective [Unknown]
